FAERS Safety Report 18545702 (Version 1)
Quarter: 2020Q4

REPORT INFORMATION
  Report Type: Spontaneous
  Country: DE (occurrence: DE)
  Receive Date: 20201125
  Receipt Date: 20201125
  Transmission Date: 20210114
  Serious: Yes (Hospitalization)
  Sender: FDA-Public Use
  Company Number: DE-MYLANLABS-2020M1096348

PATIENT
  Age: 85 Year
  Sex: Female

DRUGS (10)
  1. BROMAZEPAM [Concomitant]
     Active Substance: BROMAZEPAM
     Dosage: 6 MG, 0-0-0.25-0
  2. METOPROLOL. [Concomitant]
     Active Substance: METOPROLOL
     Dosage: 47.5 MG, 1-0-0-0
  3. ATORVASTATIN [Concomitant]
     Active Substance: ATORVASTATIN
     Dosage: 20 MG, 0-0-1-0
  4. CLOPIDOGREL [Suspect]
     Active Substance: CLOPIDOGREL BISULFATE
     Indication: PRODUCT USED FOR UNKNOWN INDICATION
     Dosage: 75 MG, 1-0-0-0
  5. PANTOPRAZOL                        /01263201/ [Concomitant]
     Active Substance: PANTOPRAZOLE
     Dosage: 40 MG, 1-0-0-0
  6. METAMIZOL                          /06276701/ [Concomitant]
     Active Substance: METAMIZOLE
     Dosage: ,500MG, IFNECESSARY
  7. ACETYLSALICYLIC ACID [Suspect]
     Active Substance: ASPIRIN
     Indication: PRODUCT USED FOR UNKNOWN INDICATION
     Dosage: 100 MG, 0-1-0-0, TABLETTEN
     Route: 048
  8. PREDNISOLONE. [Suspect]
     Active Substance: PREDNISOLONE
     Indication: PRODUCT USED FOR UNKNOWN INDICATION
     Dosage: 5 MG, 0.5-0-0-0
  9. AMLODIPIN                          /00972401/ [Concomitant]
     Active Substance: AMLODIPINE BESYLATE
     Dosage: 5 MG, 1-0-0-0
  10. NITROLINGUAL [Concomitant]
     Active Substance: NITROGLYCERIN
     Dosage: NK MG, IFNECESSARY

REACTIONS (7)
  - General physical health deterioration [Unknown]
  - Haematochezia [Unknown]
  - Abdominal pain upper [Unknown]
  - Pallor [Unknown]
  - Internal haemorrhage [Unknown]
  - Abdominal pain lower [Unknown]
  - Abdominal pain [Unknown]
